FAERS Safety Report 4493599-0 (Version None)
Quarter: 2004Q3

REPORT INFORMATION
  Report Type: 
  Country: None (occurrence: None)
  Receive Date: 20040921
  Receipt Date: 20040213
  Transmission Date: 20050211
  Serious: Yes (Hospitalization)
  Sender: FDA-Public Use
  Company Number: 163-20785-04020380

PATIENT
  Age: 66 Year
  Sex: Female
  Weight: 82.1 kg

DRUGS (45)
  1. THALOMID [Suspect]
     Indication: MULTIPLE MYELOMA
     Dosage: 400 MG, DAILY, ORAL
     Route: 048
     Dates: start: 20030807, end: 20031016
  2. CYCLOPHOSPHAMIDE [Suspect]
     Indication: MULTIPLE MYELOMA
     Dosage: 750 MG/M2, QD, INTRAVENOUS
     Route: 042
     Dates: start: 20031020, end: 20031023
  3. ADRIAMYCIN PFS [Suspect]
     Indication: MULTIPLE MYELOMA
     Dosage: 15 MG/M2, QD, INTRAVENOUS
     Route: 042
     Dates: start: 20031020, end: 20031023
  4. DEXAMETHASONE [Suspect]
     Indication: MULTIPLE MYELOMA
     Dosage: 40 MG, DAILY, ORAL
     Route: 048
     Dates: start: 20031020, end: 20031023
  5. ETOPOSIDE [Suspect]
     Indication: MULTIPLE MYELOMA
     Dosage: 63 MG, QD, INTRAVENOUS
     Route: 042
     Dates: start: 20031219, end: 20031219
  6. CISPLATIN [Suspect]
     Indication: MULTIPLE MYELOMA
     Dosage: 8 MG, QD, INTRAVENOUS
     Route: 042
     Dates: start: 20031219, end: 20031219
  7. SENNA (SENNA) [Concomitant]
  8. ZANTAC [Concomitant]
  9. BACTRIM DS (BACTRIM) (TABLETS) [Concomitant]
  10. ACYCLOVIR [Concomitant]
  11. DIFLUCAN [Concomitant]
  12. ZOLOFT [Concomitant]
  13. HYDROCHLOROTHIAZIDE [Concomitant]
  14. PRIMIDONE [Concomitant]
  15. FLEXERIL [Concomitant]
  16. HYDROCODONE (HYDROCODONE) [Concomitant]
  17. DARVON-N (DEXTROPROPOXYPHENE NAPSILATE) [Concomitant]
  18. LISINOPRIL [Concomitant]
  19. NITROGLYCERIN (GLCYERYL TRINITRATE) [Concomitant]
  20. XANAX [Concomitant]
  21. CLONIDINE [Concomitant]
  22. BENADRYL [Concomitant]
  23. LEVAQUIN [Concomitant]
  24. PEPCID AC [Concomitant]
  25. G-CSF (GRANULOCYTE COLONY STIMULATING FACTOR) [Concomitant]
  26. LOVENOX [Concomitant]
  27. SINEMET [Concomitant]
  28. VINCRISTINE [Concomitant]
  29. PLAVIX [Concomitant]
  30. ASPIRIN [Concomitant]
  31. DILANTIN [Concomitant]
  32. ISOSORBIDE DINITRATE [Concomitant]
  33. DITROPAN [Concomitant]
  34. RESTORIL [Concomitant]
  35. ATIVAN [Concomitant]
  36. SPIRONOLACTONE [Concomitant]
  37. MAGNESIUM OXIDE (MAGNESIUM OXIDE) [Concomitant]
  38. REMERON [Concomitant]
  39. NYSTATIN [Concomitant]
  40. OXYCODONE (OXYCODONE) [Concomitant]
  41. MULTIVITAMIN (MULTIVITAMINS) [Concomitant]
  42. PROCRIT [Concomitant]
  43. LOPERAMIDE HCL [Concomitant]
  44. FOLIC ACID [Concomitant]
  45. KYTRIL [Concomitant]

REACTIONS (17)
  - ASTHENIA [None]
  - BACTERAEMIA [None]
  - CEREBROVASCULAR ACCIDENT [None]
  - CONVULSION [None]
  - DISORIENTATION [None]
  - ECCHYMOSIS [None]
  - HAEMOGLOBIN DECREASED [None]
  - HEMIPARESIS [None]
  - LABORATORY TEST ABNORMAL [None]
  - LOSS OF CONSCIOUSNESS [None]
  - NAUSEA [None]
  - NEUTROPENIA [None]
  - OEDEMA PERIPHERAL [None]
  - PLATELET COUNT DECREASED [None]
  - PYREXIA [None]
  - TREMOR [None]
  - VOMITING [None]
